FAERS Safety Report 10347989 (Version 1)
Quarter: 2014Q3

REPORT INFORMATION
  Report Type: Spontaneous
  Country: US (occurrence: None)
  Receive Date: 20140725
  Receipt Date: 20140725
  Transmission Date: 20150326
  Serious: Yes (Hospitalization)
  Sender: FDA-Public Use
  Company Number: UNT-2014-003886

PATIENT
  Age: 56 Year
  Sex: Female
  Weight: 120.2 kg

DRUGS (3)
  1. REMODULIN [Suspect]
     Active Substance: TREPROSTINIL
     Indication: PULMONARY ARTERIAL HYPERTENSION
     Route: 041
     Dates: start: 20070430
  2. COUMADIN /00014802/ (WARFARIN SODIUM) [Concomitant]
  3. VIGARA (SILDENAFIL CITRATE) [Concomitant]

REACTIONS (1)
  - Cardiac failure congestive [None]
